FAERS Safety Report 11787473 (Version 1)
Quarter: 2015Q4

REPORT INFORMATION
  Report Type: Spontaneous
  Country: US (occurrence: US)
  Receive Date: 20151130
  Receipt Date: 20151130
  Transmission Date: 20160305
  Serious: Yes (Death, Other)
  Sender: FDA-Public Use
  Company Number: US-GLAXOSMITHKLINE-US2015168813

PATIENT
  Age: 46 Year
  Sex: Male

DRUGS (4)
  1. HYDROCHLOROTHIAZIDE. [Concomitant]
     Active Substance: HYDROCHLOROTHIAZIDE
  2. BENAZEPRIL [Concomitant]
     Active Substance: BENAZEPRIL HYDROCHLORIDE
  3. COREG [Suspect]
     Active Substance: CARVEDILOL
     Indication: HYPERTENSION
     Dosage: UNK, QD
     Route: 048
     Dates: start: 201201
  4. TOPAMAX [Concomitant]
     Active Substance: TOPIRAMATE

REACTIONS (14)
  - Dyspnoea [Unknown]
  - Headache [Not Recovered/Not Resolved]
  - Pulmonary haemorrhage [Unknown]
  - Dizziness [Not Recovered/Not Resolved]
  - Weight increased [Not Recovered/Not Resolved]
  - Peripheral swelling [Not Recovered/Not Resolved]
  - Drug ineffective [Unknown]
  - Cardiac failure congestive [Fatal]
  - Fatigue [Not Recovered/Not Resolved]
  - Bradycardia [Unknown]
  - Pollakiuria [Not Recovered/Not Resolved]
  - Left ventricular dysfunction [Unknown]
  - Pulmonary congestion [Unknown]
  - Swelling face [Unknown]

NARRATIVE: CASE EVENT DATE: 2012
